FAERS Safety Report 5880319-8 (Version None)
Quarter: 2008Q3

REPORT INFORMATION
  Report Type: 
  Country: None (occurrence: None)
  Receive Date: 20080912
  Receipt Date: 20080904
  Transmission Date: 20090109
  Serious: Yes (Hospitalization)
  Sender: FDA-Public Use
  Company Number: AU-PFIZER INC-2008074608

PATIENT
  Age: 45 Year
  Sex: Female

DRUGS (2)
  1. ZELDOX (CAPSULES) [Suspect]
  2. PHENELZINE [Suspect]

REACTIONS (2)
  - GENERAL PHYSICAL HEALTH DETERIORATION [None]
  - SEROTONIN SYNDROME [None]
